FAERS Safety Report 6166099-X (Version None)
Quarter: 2009Q2

REPORT INFORMATION
  Report Type: 
  Country: None (occurrence: None)
  Receive Date: 20090424
  Receipt Date: 20090421
  Transmission Date: 20091009
  Serious: Yes (Other)
  Sender: FDA-Public Use
  Company Number: US-ASTRAZENECA-2009UW10063

PATIENT

DRUGS (1)
  1. MERREM I.V. [Suspect]
     Route: 042

REACTIONS (1)
  - ANAPHYLACTIC REACTION [None]
